FAERS Safety Report 7017727-8 (Version None)
Quarter: 2010Q3

REPORT INFORMATION
  Report Type: 
  Country: None (occurrence: None)
  Receive Date: 20100928
  Receipt Date: 20100922
  Transmission Date: 20110219
  Serious: Yes (Hospitalization)
  Sender: FDA-Public Use
  Company Number: JP-EISAI INC.-E2090-01331-SPO-JP

PATIENT
  Age: 38 Year
  Sex: Male

DRUGS (2)
  1. EXCEGRAN [Suspect]
     Indication: CONVULSION
     Route: 048
     Dates: start: 20100815, end: 20100829
  2. MEIACT [Concomitant]
     Indication: PYREXIA
     Route: 048
     Dates: start: 20100827, end: 20100829

REACTIONS (1)
  - DRUG ERUPTION [None]
